FAERS Safety Report 14899339 (Version 1)
Quarter: 2018Q2

REPORT INFORMATION
  Report Type: Report from Study
  Country: US (occurrence: US)
  Receive Date: 20180516
  Receipt Date: 20180516
  Transmission Date: 20180711
  Serious: Yes (Other)
  Sender: FDA-Public Use
  Company Number: US-ASTELLAS-2018US022115

PATIENT
  Age: 34 Year
  Sex: Female

DRUGS (1)
  1. TACROLIMUS. [Suspect]
     Active Substance: TACROLIMUS
     Indication: PRODUCT USED FOR UNKNOWN INDICATION
     Dosage: 2 MG, TWICE DAILY (2 PILLS IN THE AM AND 2 PILLS IN THE PM)
     Route: 065
     Dates: end: 20180308

REACTIONS (2)
  - Treatment noncompliance [Unknown]
  - Concussion [Recovered/Resolved]

NARRATIVE: CASE EVENT DATE: 20180102
